FAERS Safety Report 15600409 (Version 1)
Quarter: 2018Q4

REPORT INFORMATION
  Report Type: Spontaneous
  Country: DZ (occurrence: DZ)
  Receive Date: 20181109
  Receipt Date: 20181109
  Transmission Date: 20190205
  Serious: Yes (Other)
  Sender: FDA-Public Use
  Company Number: DZ-PFIZER INC-2018456379

PATIENT
  Age: 74 Year
  Sex: Male

DRUGS (1)
  1. LYRICA [Suspect]
     Active Substance: PREGABALIN
     Dosage: 50 MG, 3X/DAY

REACTIONS (2)
  - Abnormal behaviour [Unknown]
  - Seizure [Unknown]
